FAERS Safety Report 20763913 (Version 1)
Quarter: 2022Q2

REPORT INFORMATION
  Report Type: Spontaneous
  Country: FR (occurrence: FR)
  Receive Date: 20220428
  Receipt Date: 20220428
  Transmission Date: 20220720
  Serious: Yes (Other)
  Sender: FDA-Public Use
  Company Number: None

PATIENT
  Age: 55 Year
  Sex: Female
  Weight: 70 kg

DRUGS (17)
  1. HEPARIN CALCIUM [Suspect]
     Active Substance: HEPARIN CALCIUM
     Indication: Thrombosis prophylaxis
     Route: 042
     Dates: start: 20220225, end: 20220308
  2. PANTOPRAZOLE [Suspect]
     Active Substance: PANTOPRAZOLE
     Indication: Prophylaxis against gastrointestinal ulcer
     Route: 042
     Dates: start: 20220225, end: 20220310
  3. SPIRAMYCIN [Suspect]
     Active Substance: SPIRAMYCIN
     Indication: Pneumonia legionella
     Route: 042
     Dates: start: 20220225, end: 20220228
  4. SPIRAMYCIN [Suspect]
     Active Substance: SPIRAMYCIN
     Dosage: 4.5 IU, QD
     Route: 042
     Dates: start: 20220302, end: 20220308
  5. LEVOFLOXACIN [Suspect]
     Active Substance: LEVOFLOXACIN
     Indication: Pneumonia legionella
     Route: 065
     Dates: start: 20220228, end: 20220320
  6. CEFTRIAXONE [Suspect]
     Active Substance: CEFTRIAXONE
     Indication: Bronchopulmonary aspergillosis
     Route: 065
     Dates: start: 20220225, end: 20220228
  7. RIFAMPIN [Suspect]
     Active Substance: RIFAMPIN
     Indication: Pneumonia legionella
     Route: 065
     Dates: start: 20220228, end: 20220302
  8. AMPHOTERICIN B [Suspect]
     Active Substance: AMPHOTERICIN B
     Indication: Bronchopulmonary aspergillosis
     Dosage: (0.2 AND 2 MG/ML)
     Route: 065
     Dates: start: 20220310
  9. CRESEMBA [Suspect]
     Active Substance: ISAVUCONAZONIUM SULFATE
     Indication: Bronchopulmonary aspergillosis
     Dosage: 600 MG, QD
     Route: 042
     Dates: start: 20220303, end: 20220310
  10. CISATRACURIUM [Concomitant]
     Active Substance: CISATRACURIUM
     Route: 065
  11. INSULIN ASPART [Concomitant]
     Active Substance: INSULIN ASPART
     Route: 065
  12. MIDAZOLAM [Concomitant]
     Active Substance: MIDAZOLAM
     Route: 065
  13. NOREPINEPHRINE [Concomitant]
     Active Substance: NOREPINEPHRINE
     Route: 065
  14. PYRIDOXINE [Concomitant]
     Active Substance: PYRIDOXINE
     Route: 065
  15. RINGER LACTATE [CALCIUM CHLORIDE;POTASSIUM CHLORIDE;SODIUM CHLORIDE;SO [Concomitant]
     Dosage: UNK, SOLUTION
     Route: 065
  16. SUFENTANIL [Concomitant]
     Active Substance: SUFENTANIL
     Route: 065
  17. THIAMINE [Concomitant]
     Active Substance: THIAMINE
     Route: 065

REACTIONS (1)
  - Acute generalised exanthematous pustulosis [Recovered/Resolved]

NARRATIVE: CASE EVENT DATE: 20220307
